FAERS Safety Report 6661276-3 (Version None)
Quarter: 2010Q1

REPORT INFORMATION
  Report Type: 
  Country: None (occurrence: None)
  Receive Date: 20100331
  Receipt Date: 20100322
  Transmission Date: 20100710
  Serious: Yes (Death)
  Sender: FDA-Public Use
  Company Number: US-AMGEN-QUU401259

PATIENT
  Sex: Male

DRUGS (1)
  1. NPLATE [Suspect]
     Indication: IDIOPATHIC THROMBOCYTOPENIC PURPURA
     Dates: start: 20100204, end: 20100211

REACTIONS (2)
  - HERNIA [None]
  - POST PROCEDURAL COMPLICATION [None]
